FAERS Safety Report 25036120 (Version 1)
Quarter: 2025Q1

REPORT INFORMATION
  Report Type: Spontaneous
  Country: US (occurrence: None)
  Receive Date: 20250303
  Receipt Date: 20250303
  Transmission Date: 20250409
  Serious: Yes (unspecified)
  Sender: FDA-CTU
  Company Number: None

PATIENT
  Age: 71 Year
  Sex: Female
  Weight: 68.4 kg

DRUGS (8)
  1. RECLAST [Suspect]
     Active Substance: ZOLEDRONIC ACID
     Indication: Osteoporosis
     Route: 042
  2. TRAMADOL [Concomitant]
     Active Substance: TRAMADOL
  3. TYLENOL [Concomitant]
     Active Substance: ACETAMINOPHEN
  4. TRAZODONE [Concomitant]
     Active Substance: TRAZODONE HYDROCHLORIDE
  5. B12 [Concomitant]
  6. D2 [Concomitant]
  7. ALBUTEROL [Concomitant]
     Active Substance: ALBUTEROL
  8. VITAMINS [Concomitant]
     Active Substance: VITAMINS

REACTIONS (18)
  - Influenza like illness [None]
  - Dysphagia [None]
  - Infusion related reaction [None]
  - Pain [None]
  - Gait disturbance [None]
  - Asthenia [None]
  - Lethargy [None]
  - Urine output decreased [None]
  - Peripheral swelling [None]
  - Peripheral swelling [None]
  - Pain in extremity [None]
  - Musculoskeletal stiffness [None]
  - Hyperaesthesia [None]
  - Erythema [None]
  - Oedema peripheral [None]
  - Pain in extremity [None]
  - Nodule [None]
  - Weight decreased [None]

NARRATIVE: CASE EVENT DATE: 20250211
